FAERS Safety Report 21044388 (Version 1)
Quarter: 2022Q3

REPORT INFORMATION
  Report Type: Spontaneous
  Country: US (occurrence: None)
  Receive Date: 20220705
  Receipt Date: 20220705
  Transmission Date: 20221027
  Serious: Yes (Hospitalization)
  Sender: FDA-Public Use
  Company Number: None

PATIENT
  Sex: Male
  Weight: 82.1 kg

DRUGS (9)
  1. ERLEADA [Suspect]
     Active Substance: APALUTAMIDE
     Indication: Prostate cancer
     Dosage: 240MG ONCE DAILOY ORAL?
     Route: 048
     Dates: start: 202205
  2. LISINOPRIL [Concomitant]
     Active Substance: LISINOPRIL
  3. SIMVASTATIN [Concomitant]
     Active Substance: SIMVASTATIN
  4. FERROUS SULFATE [Concomitant]
     Active Substance: FERROUS SULFATE
  5. PANTOPRAZOLE [Concomitant]
     Active Substance: PANTOPRAZOLE
  6. METOPROLOL [Concomitant]
     Active Substance: METOPROLOL
  7. VITAMIN C [Concomitant]
     Active Substance: ASCORBIC ACID
  8. VITMAIN D3 [Concomitant]
  9. FISH OIL\OMEGA-3 FATTY ACIDS [Concomitant]
     Active Substance: FISH OIL\OMEGA-3 FATTY ACIDS

REACTIONS (1)
  - Gastric ulcer haemorrhage [None]
